FAERS Safety Report 9742638 (Version 1)
Quarter: 2013Q4

REPORT INFORMATION
  Report Type: Spontaneous
  Country: US (occurrence: US)
  Receive Date: 20131210
  Receipt Date: 20131210
  Transmission Date: 20140711
  Serious: No
  Sender: FDA-Public Use
  Company Number: US-GILEAD-2009-0025248

PATIENT
  Sex: Female

DRUGS (7)
  1. LETAIRIS [Suspect]
     Indication: PULMONARY ARTERIAL HYPERTENSION
     Route: 048
  2. REVATIO [Concomitant]
  3. FUROSEMIDE [Concomitant]
  4. SPIRONOLACTONE [Concomitant]
  5. CHLOROTHIAZIDE [Concomitant]
  6. BUMETANIDE [Concomitant]
  7. DIGOXIN [Concomitant]

REACTIONS (3)
  - Yawning [Recovered/Resolved]
  - Haemoglobin decreased [Unknown]
  - Palpitations [Recovered/Resolved]
